FAERS Safety Report 5869404-4 (Version None)
Quarter: 2008Q3

REPORT INFORMATION
  Report Type: 
  Country: None (occurrence: None)
  Receive Date: 20080828
  Receipt Date: 20080812
  Transmission Date: 20090109
  Serious: Yes (Other)
  Sender: FDA-Public Use
  Company Number: JPI-P-004263

PATIENT
  Sex: Male

DRUGS (8)
  1. LUVOX IR (FLUVOXAMINE MALEATE) (TABLETS) (FLUVOXAMINE MALEATE) [Suspect]
     Indication: DEPRESSION
     Dosage: 50 MG, 1 D), ORAL; 100 MG, 1 D, ORAL
     Route: 048
     Dates: start: 20080617, end: 20080630
  2. LUVOX IR (FLUVOXAMINE MALEATE) (TABLETS) (FLUVOXAMINE MALEATE) [Suspect]
     Indication: DEPRESSION
     Dosage: 50 MG, 1 D), ORAL; 100 MG, 1 D, ORAL
     Route: 048
     Dates: start: 20080630, end: 20080703
  3. AMOXAPINE [Concomitant]
  4. ALPRAZOLAM [Concomitant]
  5. BROMAZEPAM (BROMAZEPAM) [Concomitant]
  6. CLOMIPRAMINE HCL [Concomitant]
  7. ZOPICLONE (ZOPICLONE) [Concomitant]
  8. LORAZEPAM [Concomitant]

REACTIONS (4)
  - ABNORMAL BEHAVIOUR [None]
  - CONFUSIONAL STATE [None]
  - SPEECH DISORDER [None]
  - SUICIDAL IDEATION [None]
